FAERS Safety Report 7897676-3 (Version None)
Quarter: 2011Q4

REPORT INFORMATION
  Report Type: 
  Country: None (occurrence: None)
  Receive Date: 20111107
  Receipt Date: 20100914
  Transmission Date: 20120403
  Serious: No
  Sender: FDA-Public Use
  Company Number: US-BAYER-201036314NA

PATIENT
  Age: 44 Year
  Sex: Female

DRUGS (1)
  1. CLIMARA [Suspect]
     Dosage: 0.1 MG, QD
     Route: 062
     Dates: start: 20080901

REACTIONS (3)
  - MOOD ALTERED [None]
  - HYPERHIDROSIS [None]
  - HOT FLUSH [None]
